FAERS Safety Report 5801406-6 (Version None)
Quarter: 2008Q2

REPORT INFORMATION
  Report Type: 
  Country: None (occurrence: None)
  Receive Date: 20080626
  Receipt Date: 20070726
  Transmission Date: 20081010
  Serious: Yes (Other)
  Sender: FDA-Public Use
  Company Number: 508732

PATIENT
  Sex: Male

DRUGS (3)
  1. XELODA [Suspect]
     Indication: PANCREATIC CARCINOMA
     Dosage: 2000 MG
     Dates: start: 20070301
  2. TAXOTERE [Concomitant]
  3. GEMZAR [Concomitant]

REACTIONS (5)
  - HEPATIC VEIN THROMBOSIS [None]
  - MESENTERIC VEIN THROMBOSIS [None]
  - PNEUMONIA [None]
  - TUMOUR MARKER INCREASED [None]
  - VENOUS THROMBOSIS [None]
